FAERS Safety Report 20103253 (Version 2)
Quarter: 2022Q1

REPORT INFORMATION
  Report Type: Spontaneous
  Country: JP (occurrence: None)
  Receive Date: 20211123
  Receipt Date: 20220325
  Transmission Date: 20220423
  Serious: Yes (Hospitalization, Other)
  Sender: FDA-Public Use
  Company Number: 2021A448261

PATIENT
  Age: 56 Year
  Sex: Female
  Weight: 50 kg

DRUGS (7)
  1. FASENRA [Suspect]
     Active Substance: BENRALIZUMAB
     Indication: Asthma
     Route: 058
     Dates: start: 20210515, end: 20210515
  2. NEXIUM CAPSULES 20MG [Concomitant]
     Indication: Eosinophilic oesophagitis
     Route: 048
  3. MONTELUKAST [Concomitant]
     Active Substance: MONTELUKAST SODIUM
     Indication: Asthma
     Route: 048
  4. OLOPATADINE HYDROCHLORIDE OD [Concomitant]
     Indication: Asthma
     Route: 048
  5. TRELEGY ELLIPTA [Concomitant]
     Active Substance: FLUTICASONE FUROATE\UMECLIDINIUM BROMIDE\VILANTEROL TRIFENATATE
     Indication: Asthma
     Dosage: DOSE UNKNOWN
     Route: 055
  6. FLUTICASONE FUROATE [Concomitant]
     Active Substance: FLUTICASONE FUROATE
     Indication: Sinusitis
     Route: 045
     Dates: start: 20210513
  7. BEPOTASTINE BESYLATE [Concomitant]
     Active Substance: BEPOTASTINE BESYLATE
     Indication: Cough
     Route: 065
     Dates: start: 20210503

REACTIONS (8)
  - Pyrexia [Recovered/Resolved]
  - Rash pruritic [Recovered/Resolved]
  - Eosinophilic granulomatosis with polyangiitis [Recovering/Resolving]
  - Erythema nodosum [Unknown]
  - Lymphadenopathy [Unknown]
  - Headache [Recovered/Resolved]
  - Skin mass [Unknown]
  - Acute febrile neutrophilic dermatosis [Unknown]

NARRATIVE: CASE EVENT DATE: 20210515
